FAERS Safety Report 6634427-4 (Version None)
Quarter: 2010Q1

REPORT INFORMATION
  Report Type: 
  Country: None (occurrence: None)
  Receive Date: 20100315
  Receipt Date: 20100308
  Transmission Date: 20100710
  Serious: Yes (Hospitalization)
  Sender: FDA-Public Use
  Company Number: FR-ROCHE-689579

PATIENT
  Sex: Female
  Weight: 70 kg

DRUGS (23)
  1. ROCEPHIN [Suspect]
     Indication: CHOLECYSTITIS
     Route: 042
     Dates: start: 20091223, end: 20100118
  2. VINBLASTINE SULFATE [Suspect]
     Indication: CHEMOTHERAPY
     Dosage: FREQUENCY: SINGLE INTAKE
     Route: 042
     Dates: start: 20091231, end: 20091231
  3. IXPRIM [Suspect]
     Indication: DRUG USE FOR UNKNOWN INDICATION
     Route: 048
     Dates: start: 20100109
  4. IXPRIM [Suspect]
     Route: 048
     Dates: end: 20100114
  5. FLAGYL [Suspect]
     Indication: CHOLECYSTITIS
     Dosage: FREQUENCY: THREE TIMES
     Route: 042
     Dates: start: 20091223, end: 20100118
  6. PRIMPERAN INJ [Suspect]
     Indication: DRUG USE FOR UNKNOWN INDICATION
     Dosage: FREQUENCY: 1-3 DAILY
     Route: 042
     Dates: start: 20100107, end: 20100112
  7. PRIMPERAN INJ [Suspect]
     Route: 042
     Dates: start: 20100114, end: 20100114
  8. ZELITREX [Concomitant]
     Route: 048
     Dates: start: 20100109
  9. SOLUMEDROL OR PLACEBO [Concomitant]
  10. BLEOMYCIN SULFATE [Concomitant]
  11. VINBLASTINE [Concomitant]
  12. DOXORUBICIN [Concomitant]
  13. DACARBAZINE [Concomitant]
  14. LASILIX [Concomitant]
  15. KEPPRA [Concomitant]
     Route: 048
  16. NEXIUM [Concomitant]
  17. CORDARONE [Concomitant]
  18. BACTRIM DS [Concomitant]
  19. HYDROCORTISONE [Concomitant]
  20. LOVENOX [Concomitant]
  21. TIORFAN [Concomitant]
  22. DIFFU K [Concomitant]
  23. CLONAZEPAM [Concomitant]

REACTIONS (2)
  - DISORIENTATION [None]
  - GRAND MAL CONVULSION [None]
